FAERS Safety Report 4290492-3 (Version None)
Quarter: 2004Q1

REPORT INFORMATION
  Report Type: 
  Country: None (occurrence: None)
  Receive Date: 20040126
  Receipt Date: 20031017
  Transmission Date: 20041129
  Serious: No
  Sender: FDA-Public Use
  Company Number: USA030434324

PATIENT
  Age: 80 Year
  Sex: Male
  Weight: 59 kg

DRUGS (10)
  1. FORTEO [Suspect]
     Indication: OSTEOPOROSIS
     Dates: start: 20030327
  2. ARICEPT [Concomitant]
  3. CALCIUM [Concomitant]
  4. ASPIRIN [Concomitant]
  5. CELEBREX [Concomitant]
  6. GARLIC [Concomitant]
  7. GLUCOSAMINE [Concomitant]
  8. PLAVIX [Concomitant]
  9. RABEPRAZOLE SODIUM [Concomitant]
  10. DOXYCLINE (DOXYCLINE HYCLATE) [Concomitant]

REACTIONS (4)
  - ASTHENIA [None]
  - DIARRHOEA [None]
  - MUSCLE CRAMP [None]
  - OEDEMA PERIPHERAL [None]
